FAERS Safety Report 8261385-1 (Version None)
Quarter: 2012Q2

REPORT INFORMATION
  Report Type: 
  Country: None (occurrence: None)
  Receive Date: 20120405
  Receipt Date: 20120330
  Transmission Date: 20120825
  Serious: Yes (Other)
  Sender: FDA-Public Use
  Company Number: US-PFIZER INC-2012063657

PATIENT
  Sex: Female
  Weight: 81.6 kg

DRUGS (9)
  1. EFFEXOR XR [Suspect]
     Indication: MAJOR DEPRESSION
     Dosage: 75 MG, 1X/DAY (75MG QD WAS ON 225MG X MOST OF THAT TIME)
     Route: 048
     Dates: start: 20050516
  2. DEPAKOTE [Concomitant]
     Indication: MOOD ALTERED
     Dosage: 500 MG, 1X/DAY AT BEDTIME
     Dates: start: 20050516, end: 20070720
  3. EFFEXOR XR [Suspect]
     Dosage: 150 MG, DAILY
     Dates: start: 20050101
  4. EFFEXOR XR [Suspect]
     Dosage: 225 MG, UNK
  5. CARBAMAZEPINE [Concomitant]
     Indication: MOOD ALTERED
     Dosage: 100 MG, AT BEDTIME
     Dates: start: 20110711
  6. CARBAMAZEPINE [Concomitant]
     Indication: DEPRESSION
  7. DEPAKOTE [Concomitant]
     Indication: DEPRESSION
  8. LAMICTAL [Concomitant]
     Indication: DEPRESSION
  9. LAMICTAL [Concomitant]
     Indication: MOOD ALTERED
     Dosage: 150 MG, 1X/DAY AT BEDTIME
     Dates: start: 20070720, end: 20110516

REACTIONS (1)
  - LUNG NEOPLASM MALIGNANT [None]
